FAERS Safety Report 9344610 (Version 1)
Quarter: 2013Q2

REPORT INFORMATION
  Report Type: Spontaneous
  Country: US (occurrence: None)
  Receive Date: 20130611
  Receipt Date: 20130611
  Transmission Date: 20140414
  Serious: No
  Sender: FDA-Public Use
  Company Number: None

PATIENT
  Age: 66 Year
  Sex: Male

DRUGS (8)
  1. POMALYST [Suspect]
     Indication: PLASMA CELL MYELOMA
     Route: 048
     Dates: start: 20130424, end: 20130503
  2. DEXAMETHASONE [Concomitant]
  3. ATENOLOL [Concomitant]
  4. FUROSEMIDE [Concomitant]
  5. KCL [Concomitant]
  6. ALLOPURINOL [Concomitant]
  7. ZOLPIDEM [Concomitant]
  8. MORPHINE [Suspect]
     Indication: PLASMA CELL MYELOMA

REACTIONS (1)
  - Rash [None]
